FAERS Safety Report 24033252 (Version 2)
Quarter: 2024Q4

REPORT INFORMATION
  Report Type: Other
  Country: DO (occurrence: DO)
  Receive Date: 20240701
  Receipt Date: 20241009
  Transmission Date: 20250115
  Serious: Yes (Death, Other)
  Sender: TOLMAR
  Company Number: DO-TOLMAR, INC.-24DO049890

PATIENT
  Age: 82 Year
  Sex: Male

DRUGS (7)
  1. ELIGARD [Suspect]
     Active Substance: LEUPROLIDE ACETATE
     Indication: Prostate cancer
     Dosage: 45 MILLIGRAM, Q 6 MONTH
     Route: 058
     Dates: start: 20230615
  2. ELIGARD [Suspect]
     Active Substance: LEUPROLIDE ACETATE
     Dosage: 45 MILLIGRAM, Q 6 MONTH
     Route: 058
     Dates: start: 2024
  3. ELIGARD [Suspect]
     Active Substance: LEUPROLIDE ACETATE
     Indication: Prostate cancer
     Dosage: UNK
  4. ENSURE [Suspect]
     Active Substance: AMINO ACIDS\DEXTROSE\ELECTROLYTES NOS\SOYBEAN OIL\VITAMINS
     Indication: Product used for unknown indication
     Dosage: UNK
  5. ZOGARA [Concomitant]
     Indication: Prostate cancer
     Dosage: UNK UNK, Q 6 MONTH
  6. GRANICIP [Concomitant]
     Indication: Prostate cancer
     Dosage: UNK UNK, Q 6 MONTH
  7. ZOLEDRONIC ACID [Concomitant]
     Active Substance: ZOLEDRONIC ACID
     Indication: Prostate cancer
     Dosage: UNK, Q 6 MONTH

REACTIONS (10)
  - Decreased appetite [Fatal]
  - Glomerular filtration rate decreased [Unknown]
  - Prostate cancer [Fatal]
  - Prostate cancer metastatic [Not Recovered/Not Resolved]
  - Depression [Unknown]
  - Bone pain [Unknown]
  - Fatigue [Unknown]
  - Cancer pain [Not Recovered/Not Resolved]
  - Blood creatinine increased [Not Recovered/Not Resolved]
  - Pain in extremity [Not Recovered/Not Resolved]

NARRATIVE: CASE EVENT DATE: 20240417
